FAERS Safety Report 24594970 (Version 5)
Quarter: 2024Q4

REPORT INFORMATION
  Report Type: Spontaneous
  Country: CH (occurrence: CH)
  Receive Date: 20241108
  Receipt Date: 20241219
  Transmission Date: 20250115
  Serious: Yes (Other)
  Sender: ELI LILLY AND COMPANY
  Company Number: CH-ELI_LILLY_AND_COMPANY-CH202411000586

PATIENT
  Age: 28 Year
  Sex: Male
  Weight: 65 kg

DRUGS (9)
  1. EMGALITY [Suspect]
     Active Substance: GALCANEZUMAB-GNLM
     Indication: Migraine
     Dosage: UNK UNK, UNKNOWN
     Route: 058
     Dates: start: 20241016, end: 20241016
  2. TEGRETON [Concomitant]
     Indication: Epilepsy
     Dosage: UNK UNK, BID (800-0-800)
     Route: 065
  3. ZONEGRAN [Concomitant]
     Active Substance: ZONISAMIDE
     Indication: Epilepsy
     Dosage: UNK UNK, BID (200-0-200)
     Route: 065
  4. CIPRALEX [Concomitant]
     Active Substance: ESCITALOPRAM OXALATE
     Indication: Epilepsy
     Dosage: UNK, OTHER (20 MORNINGS)
  5. CIPRALEX [Concomitant]
     Active Substance: ESCITALOPRAM OXALATE
     Indication: Mixed anxiety and depressive disorder
     Dosage: LONG TERM TREATMENT
     Route: 065
  6. TIROSINT [Concomitant]
     Active Substance: LEVOTHYROXINE SODIUM
     Indication: Epilepsy
     Dosage: UNK, OTHER (50 MORNINGS)
  7. TIROSINT [Concomitant]
     Active Substance: LEVOTHYROXINE SODIUM
     Indication: Hypothyroidism
     Dosage: LONG TERM TREATMENT
     Route: 065
  8. TESTOSTERONE [Concomitant]
     Active Substance: TESTOSTERONE
     Indication: Epilepsy
     Dosage: 1 DOSAGE FORM, OTHER (EVERY 4 MONTHS)
  9. TEGRETOL [Concomitant]
     Active Substance: CARBAMAZEPINE
     Indication: Epilepsy
     Dosage: LONG TERM TREATMENT
     Route: 065

REACTIONS (11)
  - Malaise [Unknown]
  - Hypotension [Unknown]
  - Solar urticaria [Recovering/Resolving]
  - Loss of consciousness [Unknown]
  - Drug hypersensitivity [Recovering/Resolving]
  - Pruritus [Recovered/Resolved]
  - Erythema [Recovering/Resolving]
  - Chest discomfort [Unknown]
  - Oropharyngeal discomfort [Unknown]
  - Dyspnoea [Unknown]
  - Rash [Unknown]

NARRATIVE: CASE EVENT DATE: 20241018
